FAERS Safety Report 19207046 (Version 3)
Quarter: 2021Q3

REPORT INFORMATION
  Report Type: Spontaneous
  Country: NO (occurrence: NO)
  Receive Date: 20210503
  Receipt Date: 20210727
  Transmission Date: 20211014
  Serious: No
  Sender: FDA-Public Use
  Company Number: NO-PFIZER INC-2021434577

PATIENT
  Sex: Female

DRUGS (1)
  1. SYNARELA [Suspect]
     Active Substance: NAFARELIN ACETATE
     Indication: ASSISTED FERTILISATION
     Dosage: 2 SPRAYS IN EACH NOSTRIL, 2X/DAY
     Route: 045
     Dates: start: 202103, end: 20210416

REACTIONS (2)
  - Incorrect dose administered by device [Recovered/Resolved]
  - Device deployment issue [Recovered/Resolved]

NARRATIVE: CASE EVENT DATE: 2021
